FAERS Safety Report 23578003 (Version 3)
Quarter: 2024Q3

REPORT INFORMATION
  Report Type: Spontaneous
  Country: US (occurrence: US)
  Receive Date: 20240229
  Receipt Date: 20240912
  Transmission Date: 20241016
  Serious: Yes (Other)
  Sender: BRISTOL MYERS SQUIBB
  Company Number: US-BRISTOL-MYERS SQUIBB COMPANY-2024-032312

PATIENT
  Age: 65 Year
  Sex: Male

DRUGS (2)
  1. POMALYST [Suspect]
     Active Substance: POMALIDOMIDE
     Indication: Plasma cell myeloma
     Dosage: WITH OR WITHOUT FOOD
     Route: 048
     Dates: start: 20210809
  2. POMALYST [Suspect]
     Active Substance: POMALIDOMIDE
     Dosage: FREQUENCY: TAKE 1 CAPSULE BY MOUTH EVERY DAY FOR 14 DAYS, THEN OFF FOR 14 DAYS. TAKE WITH OR WITHOUT
     Route: 048

REACTIONS (9)
  - Nasopharyngitis [Recovering/Resolving]
  - Diarrhoea [Recovering/Resolving]
  - Arthralgia [Recovering/Resolving]
  - Myalgia [Recovering/Resolving]
  - Food poisoning [Recovering/Resolving]
  - Product dose omission issue [Unknown]
  - General physical health deterioration [Recovering/Resolving]
  - Therapy interrupted [Recovered/Resolved]
  - Insurance issue [Recovered/Resolved]
